FAERS Safety Report 7241004-3 (Version None)
Quarter: 2011Q1

REPORT INFORMATION
  Report Type: 
  Country: None (occurrence: None)
  Receive Date: 20110124
  Receipt Date: 20110119
  Transmission Date: 20110831
  Serious: Yes (Death, Other)
  Sender: FDA-Public Use
  Company Number: IT-GENZYME-FLUD-1000644

PATIENT

DRUGS (2)
  1. FLUDARA [Suspect]
     Indication: CHRONIC LYMPHOCYTIC LEUKAEMIA
     Dosage: UNK QD X 3 DAYS Q 4 WEEKS FOR 6 CYCLES
     Route: 065
  2. CYCLOPHOSPHAMIDE [Suspect]
     Indication: CHRONIC LYMPHOCYTIC LEUKAEMIA
     Dosage: UNK QD X 3 DAYS Q 4 WEEKS FOR 6 CYCLES
     Route: 065

REACTIONS (4)
  - CARDIAC DEATH [None]
  - NEUTROPENIA [None]
  - INFECTION [None]
  - AUTOIMMUNE DISORDER [None]
